FAERS Safety Report 9329878 (Version 1)
Quarter: 2013Q2

REPORT INFORMATION
  Report Type: Spontaneous
  Country: US (occurrence: US)
  Receive Date: 20130604
  Receipt Date: 20130604
  Transmission Date: 20140414
  Serious: No
  Sender: FDA-Public Use
  Company Number: US-SANOFI-AVENTIS-2013SA005026

PATIENT
  Sex: Female

DRUGS (3)
  1. LANTUS [Suspect]
     Indication: DIABETES MELLITUS
     Dates: start: 1997
  2. LANTUS SOLOSTAR [Suspect]
  3. SOLOSTAR [Suspect]

REACTIONS (1)
  - Visual impairment [Not Recovered/Not Resolved]
